FAERS Safety Report 7686852-0 (Version None)
Quarter: 2011Q3

REPORT INFORMATION
  Report Type: 
  Country: None (occurrence: None)
  Receive Date: 20110816
  Receipt Date: 20110801
  Transmission Date: 20111222
  Serious: Yes (Other)
  Sender: FDA-Public Use
  Company Number: CN-WATSON-2011-12647

PATIENT
  Age: 59 Year
  Sex: Male

DRUGS (4)
  1. DOXYCYCLINE [Suspect]
     Indication: PHARYNGEAL CANCER STAGE III
     Dosage: UNK
  2. CARBOPLATIN [Suspect]
     Indication: PHARYNGEAL CANCER STAGE II
     Dosage: UNK
  3. CETUXIMAB [Suspect]
     Indication: PHARYNGEAL CANCER STAGE II
     Dosage: 250 MG/M2, FOR 60 MIN, WEEKLY
     Route: 042
  4. CETUXIMAB [Suspect]
     Dosage: 400 MG/M2,  FOR 120 MIN, WEEKLY
     Route: 042

REACTIONS (3)
  - ACNE [None]
  - HAEMATOLOGY TEST ABNORMAL [None]
  - SKIN REACTION [None]
